FAERS Safety Report 9016689 (Version 5)
Quarter: 2013Q2

REPORT INFORMATION
  Report Type: Spontaneous
  Country: US (occurrence: US)
  Receive Date: 20130116
  Receipt Date: 20130403
  Transmission Date: 20140414
  Serious: Yes (Disabling, Other)
  Sender: FDA-Public Use
  Company Number: US-PFIZER INC-2013017797

PATIENT
  Sex: Female

DRUGS (2)
  1. RELPAX [Suspect]
     Dosage: UNK
  2. SERTRALINE [Concomitant]
     Dosage: UNK

REACTIONS (13)
  - Visual impairment [Unknown]
  - Depression [Unknown]
  - Cardiac disorder [Unknown]
  - Gait disturbance [Unknown]
  - Arthropod bite [Unknown]
  - Endometriosis [Unknown]
  - Intervertebral disc degeneration [Unknown]
  - Menopause [Unknown]
  - Inappropriate schedule of drug administration [Unknown]
  - Migraine [Unknown]
  - Ingrowing nail [Unknown]
  - Gastrooesophageal reflux disease [Unknown]
  - Uterine disorder [Unknown]
